FAERS Safety Report 19269081 (Version 3)
Quarter: 2021Q2

REPORT INFORMATION
  Report Type: Report from Study
  Country: US (occurrence: US)
  Receive Date: 20210518
  Receipt Date: 20210617
  Transmission Date: 20210717
  Serious: No
  Sender: FDA-Public Use
  Company Number: NVSC2021US111104

PATIENT
  Sex: Female

DRUGS (1)
  1. ENTRESTO [Suspect]
     Active Substance: SACUBITRIL\VALSARTAN
     Indication: PRODUCT USED FOR UNKNOWN INDICATION
     Dosage: 50 MG, BID, 24/26MG
     Route: 048
     Dates: start: 20210511

REACTIONS (5)
  - Joint swelling [Unknown]
  - Blood pressure systolic decreased [Not Recovered/Not Resolved]
  - Dizziness [Recovering/Resolving]
  - Crying [Unknown]
  - Dyspnoea [Recovering/Resolving]
